FAERS Safety Report 8567720 (Version 3)
Quarter: 2013Q1

REPORT INFORMATION
  Report Type: Spontaneous
  Country: US (occurrence: US)
  Receive Date: 20120517
  Receipt Date: 20130215
  Transmission Date: 20140127
  Serious: Yes (Hospitalization, Other)
  Sender: FDA-Public Use
  Company Number: US-ELI_LILLY_AND_COMPANY-US201205003236

PATIENT
  Age: 68 Year
  Sex: Female
  Weight: 79.37 kg

DRUGS (17)
  1. FORTEO [Suspect]
     Indication: OSTEOPOROSIS
     Dosage: UNK, QD
     Dates: start: 201111
  2. METOPROLOL [Concomitant]
     Dosage: 175 MG, QD
  3. KLOR-CON [Concomitant]
     Dosage: 20 MG, QD
  4. LOVASTATIN [Concomitant]
     Dosage: 40 MG, QD
  5. THEOPHYLLINE [Concomitant]
     Dosage: 300 MG, BID
  6. MULTIVITAMIN [Concomitant]
     Dosage: UNK, QD
  7. ALBUTEROL [Concomitant]
     Dosage: 90 UG, OTHER
  8. DOXAZOSIN [Concomitant]
     Dosage: 2 MG, UNKNOWN
  9. ALLEGRA [Concomitant]
     Dosage: 180 MG, QD
  10. GLUCOZIDE [Concomitant]
     Dosage: 2.5 MG, QD
  11. FUROSEMIDE [Concomitant]
     Dosage: 80 MG, QD
  12. ASPIRIN [Concomitant]
     Dosage: 325 MG, QD
  13. AMLODIPINE [Concomitant]
     Dosage: 2.5 MG, QD
  14. AMLODIPINE [Concomitant]
     Dosage: 5 MG, QD
  15. BENICAR [Concomitant]
     Dosage: 40 MG, QD
  16. LACTINEX [Concomitant]
     Dosage: UNK, BID
  17. AMOXICILLINE/ACIDE CLAVULANIQUE [Concomitant]
     Dosage: UNK, BID
     Route: 048

REACTIONS (2)
  - Cellulitis [Recovered/Resolved]
  - Body height decreased [Unknown]
